FAERS Safety Report 6706156-X (Version None)
Quarter: 2010Q2

REPORT INFORMATION
  Report Type: 
  Country: None (occurrence: None)
  Receive Date: 20100430
  Receipt Date: 20100430
  Transmission Date: 20101027
  Serious: Yes (Hospitalization)
  Sender: FDA-Public Use
  Company Number: None

PATIENT
  Age: 64 Year
  Sex: Male
  Weight: 143 kg

DRUGS (2)
  1. CLINDAMYCIN [Suspect]
     Indication: HIDRADENITIS
     Dosage: 300 MG TID PO
     Route: 048
     Dates: start: 20100408, end: 20100415
  2. CLINDAMYCIN [Suspect]
     Indication: HIDRADENITIS
     Dosage: HS TOP
     Route: 061
     Dates: start: 20100408, end: 20100415

REACTIONS (5)
  - DYSPNOEA [None]
  - LIP SWELLING [None]
  - PRURITUS [None]
  - RASH ERYTHEMATOUS [None]
  - URTICARIA [None]
